FAERS Safety Report 14310638 (Version 7)
Quarter: 2018Q3

REPORT INFORMATION
  Report Type: Spontaneous
  Country: JP (occurrence: JP)
  Receive Date: 20171220
  Receipt Date: 20180921
  Transmission Date: 20181010
  Serious: Yes (Life-Threatening, Hospitalization, Disabling, Other)
  Sender: FDA-Public Use
  Company Number: JP-BEH-2017085987

PATIENT
  Age: 73 Year
  Sex: Male
  Weight: 58.9 kg

DRUGS (21)
  1. KCENTRA [Suspect]
     Active Substance: COAGULATION FACTOR IX HUMAN\COAGULATION FACTOR VII HUMAN\COAGULATION FACTOR X HUMAN\PROTEIN C\PROTEIN S HUMAN\PROTHROMBIN
     Indication: HAEMORRHAGE
  2. BISOPROLOL FUMARATE. [Concomitant]
     Active Substance: BISOPROLOL FUMARATE
     Route: 048
  3. SPIRIVA [Concomitant]
     Active Substance: TIOTROPIUM BROMIDE MONOHYDRATE
     Route: 065
  4. PRINK [Concomitant]
     Active Substance: ALPROSTADIL
     Dosage: UNK
     Route: 065
     Dates: start: 20171211, end: 20171223
  5. WARFARIN [Concomitant]
     Active Substance: WARFARIN
     Indication: INTRACARDIAC THROMBUS
  6. PRAVASTATIN. [Concomitant]
     Active Substance: PRAVASTATIN
     Route: 048
  7. PREMINENT [Concomitant]
     Active Substance: HYDROCHLOROTHIAZIDE\LOSARTAN POTASSIUM
     Dosage: UNK
     Route: 048
     Dates: end: 20171212
  8. BETAHISTINE MESILATE [Concomitant]
     Active Substance: BETAHISTINE MESILATE
     Dosage: UNK
     Route: 048
     Dates: start: 20171208, end: 20171212
  9. SYMBICORT [Concomitant]
     Active Substance: BUDESONIDE\FORMOTEROL FUMARATE DIHYDRATE
     Route: 065
  10. TRAVELMIN                          /00517301/ [Concomitant]
     Dosage: UNK
     Route: 065
     Dates: start: 20171208, end: 20171212
  11. HOKUNALIN                          /00654901/ [Concomitant]
     Active Substance: TULOBUTEROL
     Route: 065
  12. KCENTRA [Suspect]
     Active Substance: COAGULATION FACTOR IX HUMAN\COAGULATION FACTOR VII HUMAN\COAGULATION FACTOR X HUMAN\PROTEIN C\PROTEIN S HUMAN\PROTHROMBIN
     Indication: CEREBELLAR HAEMORRHAGE
     Dosage: 1475 IU, SINGLE (ALSO REPORTED AS 2000IU)
     Route: 042
     Dates: start: 20171208, end: 20171208
  13. KCENTRA [Suspect]
     Active Substance: COAGULATION FACTOR IX HUMAN\COAGULATION FACTOR VII HUMAN\COAGULATION FACTOR X HUMAN\PROTEIN C\PROTEIN S HUMAN\PROTHROMBIN
     Indication: PROCOAGULANT THERAPY
  14. WARFARIN [Concomitant]
     Active Substance: WARFARIN
     Indication: ATRIAL FIBRILLATION
     Dosage: 1 MG, UNK
     Route: 048
     Dates: start: 20050513, end: 20171207
  15. KAYTWO [Suspect]
     Active Substance: MENATETRENONE
     Indication: PROCOAGULANT THERAPY
     Dosage: 10 MG, SINGLE
     Route: 042
     Dates: start: 20171208, end: 20171208
  16. LANSOPRAZOLE. [Concomitant]
     Active Substance: LANSOPRAZOLE
     Dosage: UNK
     Route: 048
     Dates: start: 20171213
  17. NIFEDIPINE. [Concomitant]
     Active Substance: NIFEDIPINE
     Dosage: UNK
     Route: 048
     Dates: start: 20171208, end: 20171212
  18. HEPARIN [Concomitant]
     Active Substance: HEPARIN SODIUM
     Dosage: UNK
     Route: 065
     Dates: start: 20171211, end: 20171214
  19. WARFARIN [Concomitant]
     Active Substance: WARFARIN
     Indication: ATRIAL THROMBOSIS
     Dosage: 2 MG, UNK
     Route: 048
     Dates: start: 20171221
  20. INSULIN GLARGINE [Concomitant]
     Active Substance: INSULIN GLARGINE
     Dosage: UNK
     Route: 065
     Dates: start: 20171217
  21. NEXIUM [Concomitant]
     Active Substance: ESOMEPRAZOLE MAGNESIUM
     Dosage: UNK
     Route: 048
     Dates: start: 20171208, end: 20171212

REACTIONS (15)
  - Pyrexia [Unknown]
  - Carotid arterial embolus [Recovering/Resolving]
  - Embolic stroke [Recovered/Resolved with Sequelae]
  - Urinary tract infection [Recovering/Resolving]
  - Pneumonia aspiration [Recovering/Resolving]
  - C-reactive protein increased [Recovering/Resolving]
  - Atrial thrombosis [Unknown]
  - Peripheral artery occlusion [Recovering/Resolving]
  - Hemiplegia [Recovered/Resolved with Sequelae]
  - Escherichia test positive [Recovering/Resolving]
  - Pain in extremity [Recovering/Resolving]
  - Cerebral infarction [Recovered/Resolved with Sequelae]
  - Aphasia [Recovered/Resolved with Sequelae]
  - Urine abnormality [Recovering/Resolving]
  - Haemorrhagic stroke [Unknown]

NARRATIVE: CASE EVENT DATE: 20171211
